FAERS Safety Report 4715063-3 (Version None)
Quarter: 2005Q3

REPORT INFORMATION
  Report Type: 
  Country: None (occurrence: None)
  Receive Date: 20050715
  Receipt Date: 20050627
  Transmission Date: 20060218
  Serious: Yes (Hospitalization)
  Sender: FDA-Public Use
  Company Number: JP-MERCK-0507USA00323

PATIENT
  Age: 74 Year
  Sex: Male

DRUGS (10)
  1. PEPCID RPD [Suspect]
     Route: 048
     Dates: start: 20031031, end: 20050625
  2. HARNAL [Suspect]
     Route: 048
  3. DAONIL [Concomitant]
     Route: 048
     Dates: start: 20031001, end: 20031115
  4. CINAL [Concomitant]
     Route: 048
  5. LIVACT [Concomitant]
     Indication: HEPATIC CIRRHOSIS
     Route: 048
     Dates: start: 20040614
  6. CALCIUM POLYSTYRENE SULFONATE [Concomitant]
     Route: 048
     Dates: start: 20031027
  7. KREMEZIN [Concomitant]
     Route: 048
     Dates: start: 20030623, end: 20031001
  8. NEUROVITAN [Concomitant]
     Route: 048
     Dates: end: 20050623
  9. JUVELA [Concomitant]
     Route: 048
  10. ALLOPURINOL [Concomitant]
     Route: 048
     Dates: start: 20031031, end: 20050624

REACTIONS (1)
  - HAEMOLYTIC ANAEMIA [None]
